FAERS Safety Report 5389170-9 (Version None)
Quarter: 2007Q3

REPORT INFORMATION
  Report Type: 
  Country: None (occurrence: None)
  Receive Date: 20070716
  Receipt Date: 20070627
  Transmission Date: 20080115
  Serious: Yes (Hospitalization)
  Sender: FDA-Public Use
  Company Number: 2006BI006272

PATIENT
  Age: 42 Year
  Sex: Female

DRUGS (2)
  1. AVONEX [Suspect]
     Indication: MULTIPLE SCLEROSIS
     Dosage: 30 UG; QW; IM
     Route: 030
     Dates: start: 20050802, end: 20070516
  2. COPAXONE [Concomitant]

REACTIONS (3)
  - DRUG HYPERSENSITIVITY [None]
  - RESPIRATORY ARREST [None]
  - UTERINE LEIOMYOMA [None]
